FAERS Safety Report 12397359 (Version 10)
Quarter: 2017Q1

REPORT INFORMATION
  Report Type: Spontaneous
  Country: US (occurrence: US)
  Receive Date: 20160524
  Receipt Date: 20170113
  Transmission Date: 20170428
  Serious: Yes (Hospitalization, Other)
  Sender: FDA-Public Use
  Company Number: US-PFIZER INC-2016264559

PATIENT
  Age: 62 Year
  Sex: Female
  Weight: 51 kg

DRUGS (6)
  1. IBRANCE [Suspect]
     Active Substance: PALBOCICLIB
     Indication: BREAST CANCER
     Dosage: 75 MG, DAILY (FOR 21 DAYS)
     Route: 048
     Dates: start: 20160420, end: 201604
  2. IBRANCE [Suspect]
     Active Substance: PALBOCICLIB
     Dosage: 75 MG, CYCLIC (DAY 1 TO 21 EVERY 28 DAYS)
     Route: 048
     Dates: start: 20160421, end: 2016
  3. IBRANCE [Suspect]
     Active Substance: PALBOCICLIB
     Dosage: 125 MG, CYCLIC (D1-21, Q28D)
     Route: 048
     Dates: start: 20160422, end: 2016
  4. IBRANCE [Suspect]
     Active Substance: PALBOCICLIB
     Dosage: 75 MG, CYCLIC (1 CAP/DAILY FOR 21/ DAYS)
     Route: 048
  5. IBRANCE [Suspect]
     Active Substance: PALBOCICLIB
     Dosage: 75 MG, CYCLIC (DAY 1-21 Q 28 DAYS)
     Route: 048
     Dates: start: 2016
  6. IBRANCE [Suspect]
     Active Substance: PALBOCICLIB
     Dosage: 75 MG, CYCLIC (1 CAP/DAILY FOR 21 /DAYS)
     Route: 048
     Dates: start: 20160420

REACTIONS (15)
  - Mouth haemorrhage [Recovered/Resolved]
  - Hypoaesthesia [Unknown]
  - Anaemia [Unknown]
  - Urinary tract infection [Unknown]
  - Blood count abnormal [Unknown]
  - Back pain [Not Recovered/Not Resolved]
  - Asthenia [Unknown]
  - Second primary malignancy [Unknown]
  - Rash macular [Unknown]
  - Abdominal pain lower [Unknown]
  - Fatigue [Not Recovered/Not Resolved]
  - Pain in extremity [Unknown]
  - Hepatic cancer [Unknown]
  - Pain [Unknown]
  - Stomatitis [Not Recovered/Not Resolved]
